FAERS Safety Report 8044230-9 (Version None)
Quarter: 2012Q1

REPORT INFORMATION
  Report Type: 
  Country: None (occurrence: None)
  Receive Date: 20120113
  Receipt Date: 20120104
  Transmission Date: 20120608
  Serious: Yes (Other)
  Sender: FDA-Public Use
  Company Number: US-TEVA-2011002800

PATIENT
  Sex: Female
  Weight: 52.664 kg

DRUGS (9)
  1. AMLODIPINE BESYLATE [Concomitant]
  2. CYANOCOBALAMIN-TANNIN COMPLEX [Concomitant]
  3. PROVIGIL [Suspect]
     Route: 048
     Dates: start: 20090101, end: 20110425
  4. PROPYLTHIOURACIL [Concomitant]
  5. PROVIGIL [Suspect]
     Dosage: REDUCED TO AN UNSPECIFIED DOSE
     Route: 048
     Dates: start: 20110426
  6. IBUPROFEN [Concomitant]
  7. PROVIGIL [Suspect]
     Indication: NARCOLEPSY
     Route: 048
     Dates: start: 20050101, end: 20060101
  8. METOPROLOL SUCCINATE [Concomitant]
  9. MULTI-VITAMINS [Concomitant]

REACTIONS (5)
  - MATERNAL EXPOSURE DURING PREGNANCY [None]
  - ARRHYTHMOGENIC RIGHT VENTRICULAR DYSPLASIA [None]
  - GLUCOSE TOLERANCE IMPAIRED [None]
  - SUBCHORIONIC HAEMORRHAGE [None]
  - HYPERTHYROIDISM [None]
